FAERS Safety Report 5754470-7 (Version None)
Quarter: 2008Q2

REPORT INFORMATION
  Report Type: 
  Country: None (occurrence: None)
  Receive Date: 20080530
  Receipt Date: 20080502
  Transmission Date: 20081010
  Serious: No
  Sender: FDA-Public Use
  Company Number: US-BOEHRINGER INGELHEIM GMBH, GERMANY-2008-BP-06918BP

PATIENT
  Sex: Male

DRUGS (1)
  1. ZANTAC 150 [Suspect]
     Indication: DYSPEPSIA
     Route: 048
     Dates: start: 20080429, end: 20080430

REACTIONS (6)
  - BLOOD PRESSURE FLUCTUATION [None]
  - DIZZINESS [None]
  - HEADACHE [None]
  - MUSCULOSKELETAL CHEST PAIN [None]
  - WHEEZING [None]
  - YAWNING [None]
